FAERS Safety Report 11353592 (Version 1)
Quarter: 2015Q3

REPORT INFORMATION
  Report Type: Spontaneous
  Country: US (occurrence: US)
  Receive Date: 20150807
  Receipt Date: 20150807
  Transmission Date: 20151125
  Serious: No
  Sender: FDA-Public Use
  Company Number: US-JNJFOC-20150200015

PATIENT
  Age: 62 Year
  Sex: Female
  Weight: 78.02 kg

DRUGS (4)
  1. MENS ROGAINE EXTRA STRENGTH [Suspect]
     Active Substance: MINOXIDIL
     Indication: ALOPECIA
     Dosage: AS THE DIRECTIONS CALLED FOR
     Route: 061
  2. ^BLOOD PRESSURE^ MEDICATION [Concomitant]
     Active Substance: UNSPECIFIED INGREDIENT
     Indication: HYPERTENSION
     Dosage: YEARS
     Route: 065
  3. MENS ROGAINE EXTRA STRENGTH [Suspect]
     Active Substance: MINOXIDIL
     Route: 061
  4. NATURAL THYROID MEDICATION [Concomitant]
     Indication: THYROID DISORDER
     Dosage: YEARS
     Route: 065

REACTIONS (2)
  - Oedema peripheral [Recovered/Resolved]
  - Wrong patient received medication [Unknown]
